FAERS Safety Report 5083824-X (Version None)
Quarter: 2006Q3

REPORT INFORMATION
  Report Type: 
  Country: None (occurrence: None)
  Receive Date: 20060818
  Receipt Date: 20060215
  Transmission Date: 20061208
  Serious: Yes (Congenital Anomaly, Other)
  Sender: FDA-Public Use
  Company Number: US-GILEAD-2006-0009221

PATIENT
  Age: 39 Year
  Sex: Female

DRUGS (9)
  1. TRUVADA [Suspect]
     Indication: HIV INFECTION
     Route: 048
     Dates: end: 20060429
  2. TRUVADA [Suspect]
     Route: 048
     Dates: end: 20051017
  3. NORVIR [Concomitant]
     Indication: HIV INFECTION
     Route: 048
     Dates: end: 20060429
  4. NORVIR [Concomitant]
     Route: 048
     Dates: end: 20051017
  5. ATAZANAVIR [Concomitant]
     Indication: HIV INFECTION
     Route: 048
     Dates: end: 20060429
  6. ATAZANAVIR [Concomitant]
     Route: 048
     Dates: end: 20051017
  7. VIRACEPT [Concomitant]
     Indication: HIV INFECTION
     Route: 048
     Dates: start: 20051017, end: 20060429
  8. COMBIVIR [Concomitant]
     Indication: HIV INFECTION
     Route: 048
     Dates: start: 20051017, end: 20060429
  9. BETALOL [Concomitant]
     Dates: start: 20051101

REACTIONS (3)
  - DRUG EXPOSURE BEFORE PREGNANCY [None]
  - PREGNANCY [None]
  - ULTRASOUND ANTENATAL SCREEN ABNORMAL [None]
